FAERS Safety Report 5235847-5 (Version None)
Quarter: 2007Q1

REPORT INFORMATION
  Report Type: 
  Country: None (occurrence: None)
  Receive Date: 20070212
  Receipt Date: 20070206
  Transmission Date: 20070707
  Serious: Yes (Other)
  Sender: FDA-Public Use
  Company Number: US-JNJFOC-20070201787

PATIENT
  Sex: Male
  Weight: 95.26 kg

DRUGS (4)
  1. TYLENOL (CAPLET) [Suspect]
  2. TYLENOL (CAPLET) [Suspect]
     Indication: PAIN
  3. LISINOPRIL [Concomitant]
     Indication: HYPERTENSION
  4. PLENDIL [Concomitant]
     Indication: HYPERTENSION

REACTIONS (1)
  - BLOOD GLUCOSE INCREASED [None]
